FAERS Safety Report 7158037-8 (Version None)
Quarter: 2010Q4

REPORT INFORMATION
  Report Type: 
  Country: None (occurrence: None)
  Receive Date: 20101214
  Receipt Date: 20100412
  Transmission Date: 20110411
  Serious: No
  Sender: FDA-Public Use
  Company Number: US-ASTRAZENECA-2010SE16005

PATIENT
  Age: 76 Year
  Sex: Female
  Weight: 81.6 kg

DRUGS (6)
  1. CRESTOR [Suspect]
     Route: 048
  2. CITALOPRAM HYDROBROMIDE [Concomitant]
     Indication: DEPRESSION
  3. LEVOTHYROXINE [Concomitant]
     Indication: THYROID DISORDER
  4. ESTRADIOL [Concomitant]
     Indication: HORMONE THERAPY
  5. LISINOPRIL [Concomitant]
     Indication: BLOOD PRESSURE
  6. ALENDRONATE [Concomitant]
     Indication: OSTEOPOROSIS

REACTIONS (1)
  - ALLERGIC COUGH [None]
